FAERS Safety Report 4375827-5 (Version None)
Quarter: 2004Q2

REPORT INFORMATION
  Report Type: 
  Country: None (occurrence: None)
  Receive Date: 20040609
  Receipt Date: 20040609
  Transmission Date: 20050107
  Serious: Yes (Hospitalization)
  Sender: FDA-Public Use
  Company Number: None

PATIENT
  Age: 76 Year
  Sex: Male

DRUGS (7)
  1. LISINOPRIL [Suspect]
  2. LASIX [Suspect]
  3. ALDACTONE [Suspect]
  4. COLCHICINE [Concomitant]
  5. INTEGRILIN [Concomitant]
  6. OMEPRAZOLE [Concomitant]
  7. GABAPENTIN [Concomitant]

REACTIONS (1)
  - HYPERKALAEMIA [None]
